FAERS Safety Report 4838316-7 (Version None)
Quarter: 2005Q4

REPORT INFORMATION
  Report Type: 
  Country: None (occurrence: None)
  Receive Date: 20051123
  Receipt Date: 20051111
  Transmission Date: 20060501
  Serious: Yes (Hospitalization)
  Sender: FDA-Public Use
  Company Number: 2005RR-01158

PATIENT
  Age: 47 Year
  Sex: 0

DRUGS (2)
  1. ACETAMINOPHEN [Suspect]
     Dosage: 7.5 G, SINGLE, ORAL
     Route: 048
     Dates: start: 20051002, end: 20051002
  2. IBUPROFEN [Suspect]
     Dosage: 28 G, SINGLE, ORAL
     Route: 048
     Dates: start: 20051002, end: 20051002

REACTIONS (4)
  - DIZZINESS [None]
  - GASTROINTESTINAL HAEMORRHAGE [None]
  - HAEMATEMESIS [None]
  - RECTAL HAEMORRHAGE [None]
